FAERS Safety Report 8793434 (Version 1)
Quarter: 2012Q4

REPORT INFORMATION
  Report Type: 
  Country: US (occurrence: US)
  Receive Date: 20120917
  Receipt Date: 20120917
  Transmission Date: 20130627
  Serious: Yes (Other)
  Sender: FDA-Public Use
  Company Number: US-BAYER-2012-095100

PATIENT
  Age: 77 Year
  Sex: Female

DRUGS (6)
  1. AVELOX [Suspect]
     Indication: LUNG INFECTION
     Dosage: 400mg daily dose for first 5 days of every month
     Dates: start: 20120713, end: 20120719
  2. CLONIDINE [Concomitant]
  3. DIURETICS [Concomitant]
     Dosage: 25mg daily dose
  4. METFORMIN [Concomitant]
  5. PREMARIN [Concomitant]
     Dosage: UNK UNK, QOD
  6. CIPRO [Concomitant]
     Indication: LUNG INFECTION
     Dosage: 250mg
     Dates: start: 20120912

REACTIONS (4)
  - Haemoptysis [None]
  - Anaemia [None]
  - Gait disturbance [None]
  - Fatigue [None]
